FAERS Safety Report 15562669 (Version 1)
Quarter: 2018Q4

REPORT INFORMATION
  Report Type: Spontaneous
  Country: US (occurrence: US)
  Receive Date: 20181029
  Receipt Date: 20181029
  Transmission Date: 20190205
  Serious: Yes (Hospitalization)
  Sender: FDA-Public Use
  Company Number: US-LPDUSPRD-20181951

PATIENT
  Age: 45 Year
  Sex: Female

DRUGS (1)
  1. GEMCITABINE [Suspect]
     Active Substance: GEMCITABINE\GEMCITABINE HYDROCHLORIDE
     Dosage: UNKNOWN FIRST DOSE
     Route: 065

REACTIONS (3)
  - Cytopenia [Unknown]
  - Skin necrosis [Recovering/Resolving]
  - Product use in unapproved indication [Unknown]
